FAERS Safety Report 17487948 (Version 4)
Quarter: 2021Q4

REPORT INFORMATION
  Report Type: Spontaneous
  Country: US (occurrence: US)
  Receive Date: 20200303
  Receipt Date: 20211005
  Transmission Date: 20220303
  Serious: Yes (Other)
  Sender: FDA-Public Use
  Company Number: US-PFIZER INC-2020039133

PATIENT
  Age: 59 Year
  Sex: Female

DRUGS (3)
  1. XELJANZ XR [Suspect]
     Active Substance: TOFACITINIB CITRATE
     Indication: Rheumatoid arthritis
     Dosage: 11 MG, 1X/DAY
     Route: 048
     Dates: start: 201912
  2. XELJANZ XR [Suspect]
     Active Substance: TOFACITINIB CITRATE
     Dosage: 11 MG, DAILY
     Route: 048
     Dates: start: 201912
  3. MELOXICAM [Concomitant]
     Active Substance: MELOXICAM

REACTIONS (8)
  - Pneumonia [Unknown]
  - Nasopharyngitis [Recovering/Resolving]
  - Nasal congestion [Recovering/Resolving]
  - Sinusitis [Unknown]
  - Discouragement [Unknown]
  - Depressed mood [Unknown]
  - Inflammation [Unknown]
  - Condition aggravated [Unknown]

NARRATIVE: CASE EVENT DATE: 20200101
